FAERS Safety Report 15204528 (Version 1)
Quarter: 2018Q3

REPORT INFORMATION
  Report Type: Spontaneous
  Country: GB (occurrence: GB)
  Receive Date: 20180726
  Receipt Date: 20180726
  Transmission Date: 20181010
  Serious: Yes (Other)
  Sender: FDA-Public Use
  Company Number: GB-TEVA-2018-GB-931113

PATIENT
  Age: 75 Year
  Sex: Female
  Weight: 63.5 kg

DRUGS (1)
  1. DULOXETINE. [Suspect]
     Active Substance: DULOXETINE
     Indication: DIZZINESS
     Dosage: 30 MILLIGRAM DAILY;
     Route: 048
     Dates: start: 20161006, end: 20161008

REACTIONS (3)
  - Memory impairment [Unknown]
  - Malaise [Unknown]
  - Presyncope [Unknown]

NARRATIVE: CASE EVENT DATE: 20161006
